FAERS Safety Report 6925315-4 (Version None)
Quarter: 2010Q3

REPORT INFORMATION
  Report Type: 
  Country: None (occurrence: None)
  Receive Date: 20100810
  Receipt Date: 20100729
  Transmission Date: 20110219
  Serious: Yes (Life-Threatening)
  Sender: FDA-Public Use
  Company Number: 010354

PATIENT
  Age: 82 Year
  Sex: Female
  Weight: 21.22 kg

DRUGS (21)
  1. PLETAL [Suspect]
     Indication: CEREBRAL INFARCTION
     Dosage: 100 MG, BID ORAL
     Route: 048
     Dates: start: 20100514, end: 20100705
  2. ASPIRIN [Suspect]
     Indication: CEREBRAL INFARCTION
     Dosage: 300 MG, DAILY DOSE ORAL, 100 MG, QD;ORAL
     Route: 048
     Dates: start: 20100514, end: 20100516
  3. ASPIRIN [Suspect]
     Indication: CEREBRAL INFARCTION
     Dosage: 300 MG, DAILY DOSE ORAL, 100 MG, QD;ORAL
     Route: 048
     Dates: start: 20100517, end: 20100519
  4. ASPIRIN [Suspect]
     Indication: CEREBRAL INFARCTION
     Dosage: 300 MG, DAILY DOSE ORAL, 100 MG, QD;ORAL
     Route: 048
     Dates: start: 20100625, end: 20100704
  5. PLAVIX [Suspect]
     Indication: CEREBRAL INFARCTION
     Dosage: 75 MG, QD; ORAL
     Route: 048
     Dates: start: 20100514, end: 20100703
  6. CLARITH (CLARITHROMYCIN) TABLET, 200 MG [Suspect]
     Indication: BRONCHITIS
     Dosage: 200 MG, BID; ORAL
     Route: 048
     Dates: start: 20100618, end: 20100630
  7. RADICUT (EDARAVONE) INJECTION [Concomitant]
  8. NOVASTATIN HI (ARGATROBAN) INJECTION [Concomitant]
  9. HEPARIN AND PREPARATION (HEPARIN AND PREPARATIONS) INJECTION [Concomitant]
  10. MUCOSTA (REBAMIPIDE) TABLET [Concomitant]
  11. PANTOSIN (PANTETHINE) POWDER FOR ORAL SOLUTION [Concomitant]
  12. MAGNESIUMN OXIDE (MAGNESIUM OXIDE) [Concomitant]
  13. ATELEC (CLINIDIPINE) TABLET [Concomitant]
  14. ASPIRIN (ASPIRIN) POWDER FOR ORAL SUSPENSION [Concomitant]
  15. NORVASC OD (AMLODIPINE BESILATE) ORODISPERSIBLE TABLET [Concomitant]
  16. DIOVAN [Concomitant]
  17. KALGUT (DENOPAMINE) [Concomitant]
  18. LIPITOR [Concomitant]
  19. FAMOTIDINE [Concomitant]
  20. ONE-ALPHA (ALFACALCIDOL) [Concomitant]
  21. VESICARE [Concomitant]

REACTIONS (3)
  - AGRANULOCYTOSIS [None]
  - BONE MARROW FAILURE [None]
  - CEREBRAL INFARCTION [None]
